FAERS Safety Report 11543942 (Version 1)
Quarter: 2015Q3

REPORT INFORMATION
  Report Type: Spontaneous
  Country: US (occurrence: US)
  Receive Date: 20150924
  Receipt Date: 20150924
  Transmission Date: 20151125
  Serious: No
  Sender: FDA-Public Use
  Company Number: PHEH2014US022007

PATIENT
  Age: 64 Year
  Sex: Female
  Weight: 72.5 kg

DRUGS (14)
  1. POLYETHYLENE GLYCOL [Suspect]
     Active Substance: POLYETHYLENE GLYCOLS
     Indication: PRODUCT USED FOR UNKNOWN INDICATION
     Dosage: UNK UKN, UNK
     Route: 065
  2. FENTANYL. [Concomitant]
     Active Substance: FENTANYL
     Indication: PAIN
     Dosage: UNK UKN, UNK
     Route: 065
  3. CLONIDINE. [Concomitant]
     Active Substance: CLONIDINE
     Indication: HYPERTENSION
     Dosage: 0.3 MG, ONCE A WEEK
     Route: 065
  4. TYLENOL [Concomitant]
     Active Substance: ACETAMINOPHEN
     Indication: PAIN
     Dosage: UNK UKN, UNK
     Route: 065
  5. METHOCARBAMOL. [Suspect]
     Active Substance: METHOCARBAMOL
     Indication: MYALGIA
     Dosage: 500 MG, Q A 12 HOURS
     Route: 065
     Dates: end: 20140821
  6. CELEBREX [Concomitant]
     Active Substance: CELECOXIB
     Indication: RHEUMATOID ARTHRITIS
     Dosage: UNK UKN, UNK
     Route: 065
  7. FOLIC ACID. [Concomitant]
     Active Substance: FOLIC ACID
     Indication: PRODUCT USED FOR UNKNOWN INDICATION
     Dosage: UNK UKN, UNK
     Route: 065
  8. HUMIRA [Suspect]
     Active Substance: ADALIMUMAB
     Indication: RHEUMATOID ARTHRITIS
     Dosage: 40 MG, 1 IN 2 WEEK
     Route: 065
     Dates: start: 2008
  9. BENAZEPRIL [Concomitant]
     Active Substance: BENAZEPRIL HYDROCHLORIDE
     Indication: HYPERTENSION
     Dosage: UNK UKN, UNK
     Route: 065
  10. HCTZ [Concomitant]
     Active Substance: HYDROCHLOROTHIAZIDE
     Indication: HYPERTENSION
     Dosage: 12.5 MG, Q DAY
     Route: 065
     Dates: start: 201404
  11. VOLTAREN [Suspect]
     Active Substance: DICLOFENAC SODIUM
     Indication: MYALGIA
     Dosage: UNK UKN, 4 IN 1 CYCLICAL
     Route: 065
  12. HUMIRA [Suspect]
     Active Substance: ADALIMUMAB
     Dosage: 40 MG, EVERY 10 DAYS
     Route: 065
  13. MOTRIN [Suspect]
     Active Substance: IBUPROFEN
     Indication: PRODUCT USED FOR UNKNOWN INDICATION
     Dosage: UNK UKN, UNK
     Route: 065
  14. NIFEDIPINE. [Concomitant]
     Active Substance: NIFEDIPINE
     Indication: HYPERTENSION
     Dosage: UNK UKN, UNK
     Route: 065

REACTIONS (1)
  - Drug effect decreased [Unknown]

NARRATIVE: CASE EVENT DATE: 201407
